FAERS Safety Report 8838377 (Version 1)
Quarter: 2012Q4

REPORT INFORMATION
  Report Type: 
  Country: BR (occurrence: BR)
  Receive Date: 20121012
  Receipt Date: 20121012
  Transmission Date: 20130627
  Serious: Yes (Other)
  Sender: FDA-Public Use
  Company Number: BR-ASTRAZENECA-2008UW12822

PATIENT
  Age: 58 Year
  Sex: Female
  Weight: 80 kg

DRUGS (4)
  1. ATACAND HCT [Suspect]
     Indication: HYPERTENSION
     Dosage: 8 MG/12.5 MG
     Route: 048
     Dates: start: 1997, end: 20121001
  2. ARIMIDEX [Suspect]
     Indication: BREAST CANCER
     Dosage: OD
     Route: 048
     Dates: start: 2006, end: 200712
  3. ARIMIDEX [Suspect]
     Indication: BREAST CANCER
     Dosage: OD
     Route: 048
     Dates: start: 200801, end: 200806
  4. ATACAND [Concomitant]
     Indication: HYPERTENSION
     Route: 048
     Dates: start: 2003

REACTIONS (5)
  - Hypertension [Recovered/Resolved]
  - Headache [Recovered/Resolved]
  - Oedema peripheral [Not Recovered/Not Resolved]
  - Nausea [Not Recovered/Not Resolved]
  - Drug dose omission [Unknown]
